FAERS Safety Report 24036856 (Version 2)
Quarter: 2024Q3

REPORT INFORMATION
  Report Type: Spontaneous
  Country: CN (occurrence: CN)
  Receive Date: 20240701
  Receipt Date: 20240819
  Transmission Date: 20241016
  Serious: Yes (Life-Threatening, Hospitalization)
  Sender: EISAI
  Company Number: CN-Eisai-EC-2024-169021

PATIENT
  Age: 67 Year
  Sex: Female
  Weight: 50 kg

DRUGS (1)
  1. LENVATINIB [Suspect]
     Active Substance: LENVATINIB
     Indication: Hepatic cancer
     Dosage: 2 DOSAGE FORMS (DOSE UNKNOWN)
     Route: 048
     Dates: start: 202310, end: 20240727

REACTIONS (5)
  - Asthenia [Recovering/Resolving]
  - Decreased appetite [Unknown]
  - Poor quality sleep [Unknown]
  - Gait disturbance [Unknown]
  - Platelet count decreased [Recovering/Resolving]

NARRATIVE: CASE EVENT DATE: 20240618
